FAERS Safety Report 9980222 (Version 1)
Quarter: 2014Q1

REPORT INFORMATION
  Report Type: Report from Study
  Country: US (occurrence: US)
  Receive Date: 20140307
  Receipt Date: 20140307
  Transmission Date: 20141002
  Serious: No
  Sender: FDA-Public Use
  Company Number: US-ABBVIE-13P-163-1175823-00

PATIENT
  Sex: Female

DRUGS (3)
  1. HUMIRA [Suspect]
     Indication: ANKYLOSING SPONDYLITIS
     Route: 058
  2. DULERA [Concomitant]
     Indication: ASTHMA
     Route: 055
  3. LIDOCAINE [Concomitant]
     Indication: ANKYLOSING SPONDYLITIS
     Dosage: STEROID INJECTION IN SI JOINT AND NECK 3X/YEAR

REACTIONS (2)
  - Back pain [Recovered/Resolved]
  - Urticaria [Recovered/Resolved]
